FAERS Safety Report 8661606 (Version 6)
Quarter: 2013Q1

REPORT INFORMATION
  Report Type: Report from Study
  Country: US (occurrence: US)
  Receive Date: 20120712
  Receipt Date: 20130130
  Transmission Date: 20140127
  Serious: Yes (Hospitalization)
  Sender: FDA-Public Use
  Company Number: US-EISAI INC-E7389-02661-CLI-US

PATIENT
  Age: 41 Year
  Sex: Male
  Weight: 88 kg

DRUGS (14)
  1. E7389 (BOLD) [Suspect]
     Indication: LEIOMYOSARCOMA
     Route: 041
     Dates: start: 20120621, end: 20120621
  2. SENOKOT [Concomitant]
     Indication: CONSTIPATION
     Route: 048
     Dates: start: 20120708
  3. RESTORIL [Concomitant]
     Indication: INSOMNIA
     Route: 048
     Dates: end: 20120716
  4. OXYCODONE [Concomitant]
     Indication: PAIN
     Route: 048
     Dates: start: 20120708
  5. COMPAZINE [Concomitant]
     Indication: NAUSEA
     Route: 048
  6. PROTONIX [Concomitant]
     Indication: GASTROOESOPHAGEAL REFLUX DISEASE
     Route: 048
     Dates: start: 20120708
  7. TYLENOL [Concomitant]
     Indication: PYREXIA
     Route: 048
  8. ATARAX [Concomitant]
     Indication: PRURITUS
     Route: 048
     Dates: start: 20120708
  9. PHENERGAN [Concomitant]
     Indication: NAUSEA
     Route: 048
     Dates: start: 20120708
  10. TEMAZEPAM [Concomitant]
     Route: 048
  11. MULTIVITAMIN [Concomitant]
     Route: 048
  12. MIRALAX [Concomitant]
  13. OXYCONTIN [Concomitant]
  14. LACTULOSE [Concomitant]
     Indication: CONSTIPATION

REACTIONS (5)
  - Hepatotoxicity [Not Recovered/Not Resolved]
  - Hyperbilirubinaemia [Not Recovered/Not Resolved]
  - Neutropenia [Recovered/Resolved]
  - Abdominal pain [Not Recovered/Not Resolved]
  - Constipation [Recovered/Resolved]
